FAERS Safety Report 10415560 (Version 1)
Quarter: 2014Q2

REPORT INFORMATION
  Report Type: Spontaneous
  Country: US (occurrence: None)
  Receive Date: 20140604
  Receipt Date: 20140604
  Transmission Date: 20141212
  Serious: Yes (Other)
  Sender: FDA-Public Use
  Company Number: 163-POMAL-14045419

PATIENT
  Age: 73 Year
  Sex: Female
  Weight: 32.11 kg

DRUGS (10)
  1. POMALYST (POMALIDOMIDE) (3 MILLIGRAM, CAPSULES) [Suspect]
     Indication: PLASMA CELL MYELOMA
     Dosage: 21 IN 21 D
     Route: 048
     Dates: start: 20140417
  2. ASPIRIN (ACETYLSALICYLIC ACID) [Concomitant]
  3. NORVASC (AMLODIPINE BESILATE) [Concomitant]
  4. LIPITOR (ATORVASTATIN) [Concomitant]
  5. GABAPENTIN [Concomitant]
  6. NADOLOL [Concomitant]
  7. ACYCLOVIR (ACICLOVIR) [Concomitant]
  8. PRILOSEC (OMEPRAZOLE) [Concomitant]
  9. MAGNESIUM [Concomitant]
  10. MULTIVITAMINS [Concomitant]

REACTIONS (2)
  - Hand-eye coordination impaired [None]
  - Dizziness [None]
